FAERS Safety Report 24002135 (Version 1)
Quarter: 2024Q2

REPORT INFORMATION
  Report Type: Spontaneous
  Country: CA (occurrence: CA)
  Receive Date: 20240622
  Receipt Date: 20240622
  Transmission Date: 20240716
  Serious: Yes (Other)
  Sender: FDA-Public Use
  Company Number: None

PATIENT
  Age: 66 Year
  Sex: Female

DRUGS (2)
  1. METHOTREXATE [Suspect]
     Active Substance: METHOTREXATE
     Indication: Rheumatoid arthritis
     Dosage: 1 EVERY 1 WEEKS
     Route: 048
  2. SULFASALAZINE [Suspect]
     Active Substance: SULFASALAZINE
     Indication: Rheumatoid arthritis
     Dosage: 1 EVERY 1 DAYS
     Route: 048

REACTIONS (9)
  - COVID-19 [Recovered/Resolved]
  - Dermatitis [Recovered/Resolved]
  - Diarrhoea [Recovered/Resolved]
  - Meniscus injury [Recovered/Resolved]
  - Nodule [Recovered/Resolved]
  - Osteoarthritis [Recovered/Resolved]
  - Pain in extremity [Recovered/Resolved]
  - Pneumonia [Recovered/Resolved]
  - Transplant failure [Recovered/Resolved]
